FAERS Safety Report 25772059 (Version 2)
Quarter: 2025Q3

REPORT INFORMATION
  Report Type: Spontaneous
  Country: EU (occurrence: EU)
  Receive Date: 20250908
  Receipt Date: 20250918
  Transmission Date: 20251020
  Serious: Yes (Hospitalization)
  Sender: TEVA
  Company Number: EU-TEVA-VS-3369054

PATIENT
  Age: 40 Year
  Sex: Male

DRUGS (1)
  1. CLOZAPINE [Suspect]
     Active Substance: CLOZAPINE
     Indication: Schizophrenia
     Route: 065
     Dates: start: 2015

REACTIONS (4)
  - Dilated cardiomyopathy [Recovering/Resolving]
  - Ventricular tachycardia [Recovering/Resolving]
  - Cardiac failure [Recovering/Resolving]
  - Left ventricular failure [Recovering/Resolving]
